FAERS Safety Report 4993385-9 (Version None)
Quarter: 2006Q2

REPORT INFORMATION
  Report Type: 
  Country: None (occurrence: None)
  Receive Date: 20060505
  Receipt Date: 20060427
  Transmission Date: 20061013
  Serious: Yes (Other)
  Sender: FDA-Public Use
  Company Number: US-AVENTIS-200613873US

PATIENT
  Sex: Female

DRUGS (7)
  1. KETEK [Suspect]
     Indication: BRONCHITIS
     Route: 048
     Dates: start: 20060214, end: 20060218
  2. LEVAQUIN [Suspect]
     Indication: BRONCHITIS
     Dosage: DOSE: UNKNOWN
     Dates: start: 20060228, end: 20060306
  3. ESTROGENS SOL/INJ [Concomitant]
     Dosage: DOSE: UNKNOWN
  4. PROGESTERONE [Concomitant]
     Dosage: DOSE: UNKNOWN
  5. TESTOSTERONE [Concomitant]
     Dosage: DOSE: UNKNOWN
  6. IBUPROFEN [Concomitant]
     Dosage: DOSE: UNKNOWN
  7. ROBITUSSIN-DM [Concomitant]
     Dosage: DOSE: UNKNOWN

REACTIONS (6)
  - ALANINE AMINOTRANSFERASE INCREASED [None]
  - ASPARTATE AMINOTRANSFERASE INCREASED [None]
  - ASTHENIA [None]
  - DRUG INEFFECTIVE [None]
  - LIVER FUNCTION TEST ABNORMAL [None]
  - MALAISE [None]
